FAERS Safety Report 23485654 (Version 3)
Quarter: 2024Q1

REPORT INFORMATION
  Report Type: Spontaneous
  Country: TR (occurrence: TR)
  Receive Date: 20240206
  Receipt Date: 20240315
  Transmission Date: 20240410
  Serious: Yes (Death, Other)
  Sender: FDA-Public Use
  Company Number: TR-ASTELLAS-2024US003532

PATIENT
  Age: 33 Year
  Sex: Male

DRUGS (6)
  1. XOSPATA [Suspect]
     Active Substance: GILTERITINIB
     Indication: Acute myeloid leukaemia recurrent
     Route: 048
     Dates: start: 20230911, end: 20231205
  2. XOSPATA [Suspect]
     Active Substance: GILTERITINIB
     Indication: FLT3 gene mutation
  3. AMOXICILLIN [Concomitant]
     Active Substance: AMOXICILLIN
     Indication: Product used for unknown indication
     Dosage: 2000 MG (2X1000 MG), UNKNOWN FREQ.
     Route: 065
  4. ENTECAVIR [Concomitant]
     Active Substance: ENTECAVIR
     Indication: Product used for unknown indication
     Dosage: 0.5 MG, UNKNOWN FREQ.
     Route: 065
  5. VALGANCICLOVIR [Concomitant]
     Active Substance: VALGANCICLOVIR
     Indication: Product used for unknown indication
     Route: 065
  6. FLUCONAZOLE [Concomitant]
     Active Substance: FLUCONAZOLE
     Indication: Product used for unknown indication
     Route: 065

REACTIONS (2)
  - Sepsis [Fatal]
  - Acute respiratory distress syndrome [Fatal]
